FAERS Safety Report 12851009 (Version 3)
Quarter: 2016Q4

REPORT INFORMATION
  Report Type: Report from Study
  Country: PL (occurrence: PL)
  Receive Date: 20161017
  Receipt Date: 20161215
  Transmission Date: 20170207
  Serious: Yes (Hospitalization)
  Sender: FDA-Public Use
  Company Number: PL-BIOGEN-2016BI00256104

PATIENT
  Age: 52 Year
  Sex: Female
  Weight: 64.3 kg

DRUGS (6)
  1. METYPRED [Concomitant]
     Active Substance: METHYLPREDNISOLONE
     Route: 048
     Dates: start: 20160411, end: 20160417
  2. METYPRED [Concomitant]
     Active Substance: METHYLPREDNISOLONE
     Indication: ORAL MUCOSA EROSION
     Route: 048
     Dates: start: 20160407, end: 20160410
  3. METYPRED [Concomitant]
     Active Substance: METHYLPREDNISOLONE
     Route: 048
     Dates: start: 20160418, end: 20160506
  4. METYPRED [Concomitant]
     Active Substance: METHYLPREDNISOLONE
     Route: 048
     Dates: start: 20160506, end: 20160520
  5. DOXYCYCLINUM [Concomitant]
     Indication: ORAL MUCOSA EROSION
     Route: 048
     Dates: start: 20160411, end: 20160424
  6. DACLIZUMAB HYP [Suspect]
     Active Substance: DACLIZUMAB
     Indication: MULTIPLE SCLEROSIS
     Route: 058
     Dates: start: 20140227

REACTIONS (1)
  - Pemphigoid [Recovered/Resolved]

NARRATIVE: CASE EVENT DATE: 20160621
